FAERS Safety Report 5106622-7 (Version None)
Quarter: 2006Q3

REPORT INFORMATION
  Report Type: 
  Country: None (occurrence: None)
  Receive Date: 20060731
  Receipt Date: 20051101
  Transmission Date: 20061208
  Serious: Yes (Death)
  Sender: FDA-Public Use
  Company Number: US-JNJFOC-20050605644

PATIENT
  Age: 99 Year
  Sex: Female
  Weight: 82.1011 kg

DRUGS (1)
  1. RISPERDAL [Suspect]
     Indication: DRUG USE FOR UNKNOWN INDICATION
     Dosage: 1 MG , 2 IN 1 DAY

REACTIONS (1)
  - CARDIAC ARREST [None]
